FAERS Safety Report 20500180 (Version 2)
Quarter: 2022Q1

REPORT INFORMATION
  Report Type: Spontaneous
  Country: US (occurrence: US)
  Receive Date: 20220222
  Receipt Date: 20220302
  Transmission Date: 20220423
  Serious: Yes (Other)
  Sender: FDA-Public Use
  Company Number: US-BAYER-2022A026371

PATIENT
  Sex: Female

DRUGS (1)
  1. KYLEENA [Suspect]
     Active Substance: LEVONORGESTREL
     Indication: Intra-uterine contraceptive device insertion
     Dosage: 17.5?G/DAY
     Route: 015
     Dates: start: 20210401, end: 20220209

REACTIONS (3)
  - Device dislocation [Recovered/Resolved]
  - Medical device discomfort [Recovered/Resolved]
  - Abdominal pain lower [Recovered/Resolved]
